FAERS Safety Report 17561079 (Version 1)
Quarter: 2020Q1

REPORT INFORMATION
  Report Type: Spontaneous
  Country: US (occurrence: US)
  Receive Date: 20200312
  Receipt Date: 20200312
  Transmission Date: 20200409
  Serious: Yes (Hospitalization)
  Sender: FDA-Public Use
  Company Number: None

PATIENT
  Age: 71 Year
  Sex: Male

DRUGS (2)
  1. ASPIRIN (ASPIRIN 81MG TAB, CHEWABLE) [Suspect]
     Active Substance: ASPIRIN
     Indication: VASCULAR DEVICE USER
     Route: 048
     Dates: start: 20070927, end: 20200225
  2. CLOPIDOGREL (CLOPIDOGREL BISULFATE 75MG TAB) [Suspect]
     Active Substance: CLOPIDOGREL BISULFATE
     Indication: VASCULAR DEVICE USER
     Route: 048
     Dates: start: 20161213

REACTIONS (6)
  - Gastric ulcer [None]
  - Duodenal ulcer [None]
  - Gastric haemorrhage [None]
  - Mallory-Weiss syndrome [None]
  - Varices oesophageal [None]
  - Haematemesis [None]

NARRATIVE: CASE EVENT DATE: 20200219
